FAERS Safety Report 19856296 (Version 1)
Quarter: 2021Q3

REPORT INFORMATION
  Report Type: Spontaneous
  Country: NL (occurrence: NL)
  Receive Date: 20210920
  Receipt Date: 20210920
  Transmission Date: 20211014
  Serious: Yes (Other)
  Sender: FDA-Public Use
  Company Number: NL-TEVA-2021-NL-1953642

PATIENT
  Age: 45 Year
  Sex: Female
  Weight: 53 kg

DRUGS (3)
  1. BUPRENORFINE TABLET SUBLINGUAAL 0,2MG / TEMGESIC SL TABLET OROMUCOSAAL [Suspect]
     Active Substance: BUPRENORPHINE
     Indication: DRUG DEPENDENCE
     Dosage: 4D1, THERAPY END DATE: ASKU
     Route: 065
     Dates: start: 202101
  2. CLONAZEPAM TABLET 0,5MG / BRAND NAME NOT SPECIFIED [Suspect]
     Active Substance: CLONAZEPAM
     Indication: INSOMNIA
     Dosage: 1 DOSAGE FORMS DAILY; 1D1 FOR THE NIGHT, THERAPY END DATE: ASKU
     Route: 065
     Dates: start: 202101
  3. QUETIAPINE TABLET FO  25MG / BRAND NAME NOT SPECIFIED [Suspect]
     Active Substance: QUETIAPINE
     Indication: INSOMNIA
     Dosage: 1 DOSAGE FORMS DAILY; 1D1 FOR THE NIGHT, THERAPY END DATE: ASKU
     Route: 065
     Dates: start: 202101

REACTIONS (1)
  - Mastitis [Recovered/Resolved]

NARRATIVE: CASE EVENT DATE: 20210617
